FAERS Safety Report 8687322 (Version 5)
Quarter: 2014Q1

REPORT INFORMATION
  Report Type: Report from Study
  Country: US (occurrence: US)
  Receive Date: 20120727
  Receipt Date: 20140328
  Transmission Date: 20141002
  Serious: Yes (Hospitalization)
  Sender: FDA-Public Use
  Company Number: US-JNJFOC-20120711675

PATIENT
  Age: 16 Year
  Sex: Male
  Weight: 77.1 kg

DRUGS (5)
  1. REMICADE [Suspect]
     Indication: COLITIS ULCERATIVE
     Route: 042
     Dates: start: 20120220, end: 201207
  2. IRON [Concomitant]
  3. PRILOSEC [Concomitant]
  4. PREDNISONE [Concomitant]
  5. PROBIOTIC [Concomitant]

REACTIONS (1)
  - Colitis ulcerative [Recovered/Resolved]
